FAERS Safety Report 16799721 (Version 2)
Quarter: 2019Q4

REPORT INFORMATION
  Report Type: Spontaneous
  Country: US (occurrence: US)
  Receive Date: 20190912
  Receipt Date: 20191009
  Transmission Date: 20200122
  Serious: Yes (Hospitalization)
  Sender: FDA-Public Use
  Company Number: US-C B FLEET CO INC-201909-US-003030

PATIENT
  Sex: Female
  Weight: 84.44 kg

DRUGS (14)
  1. LISINOPRIL. [Concomitant]
     Active Substance: LISINOPRIL
     Dosage: 1 TAB PO QD
  2. DICLOFENAC [Concomitant]
     Active Substance: DICLOFENAC
  3. BENAZEPRIL [Concomitant]
     Active Substance: BENAZEPRIL HYDROCHLORIDE
  4. GABAPENTIN. [Concomitant]
     Active Substance: GABAPENTIN
     Dosage: 1 CAP TID PO
  5. NOVOLOG [Concomitant]
     Active Substance: INSULIN ASPART
     Dosage: 100 U/ML, INJECT 5 UNITS SUBQ TID WITH MEALS
  6. METOPROLOL. [Concomitant]
     Active Substance: METOPROLOL
     Dosage: 1 TAB PO QD
  7. GLIMEPIRIDE. [Concomitant]
     Active Substance: GLIMEPIRIDE
     Dosage: 1 TAB PO QD
  8. DERMAREST PSORIASIS MEDICATED [Suspect]
     Active Substance: SALICYLIC ACID
     Indication: DRY SKIN
     Dosage: USED 6 WEEKS
     Route: 061
  9. HYDROCHLOROTHIAZIDE. [Concomitant]
     Active Substance: HYDROCHLOROTHIAZIDE
     Dosage: 1 TAB PO QD
  10. AMLODIPINE [Concomitant]
     Active Substance: AMLODIPINE BESYLATE
     Dosage: 1 TAB PO QD
  11. RANITIDINE. [Concomitant]
     Active Substance: RANITIDINE
     Dosage: 1 TAB PO QD
  12. LANTUS [Concomitant]
     Active Substance: INSULIN GLARGINE
     Dosage: 100 U/ML, INJECT 30U SUBQ QD
  13. ASPIRIN. [Concomitant]
     Active Substance: ASPIRIN
     Route: 048
  14. METFORMIN [Concomitant]
     Active Substance: METFORMIN HYDROCHLORIDE
     Dosage: 1 TAB PO QD

REACTIONS (12)
  - Muscular weakness [Recovered/Resolved]
  - Feeling hot [Recovered/Resolved]
  - Chest pain [Recovered/Resolved]
  - Chills [Recovered/Resolved]
  - Lethargy [Recovered/Resolved]
  - Diarrhoea [Recovered/Resolved]
  - Oedema [Recovered/Resolved]
  - Abdominal pain upper [Recovered/Resolved]
  - Anxiety [Recovered/Resolved]
  - Bronchitis [Recovered/Resolved]
  - Periorbital swelling [Recovered/Resolved]
  - Dyspnoea [Recovered/Resolved]
